FAERS Safety Report 7970501-8 (Version None)
Quarter: 2011Q4

REPORT INFORMATION
  Report Type: 
  Country: None (occurrence: None)
  Receive Date: 20111212
  Receipt Date: 20110809
  Transmission Date: 20120403
  Serious: No
  Sender: FDA-Public Use
  Company Number: US-ABBOTT-11P-163-0845064-00

PATIENT
  Sex: Male

DRUGS (3)
  1. CINRYZE [Suspect]
     Indication: PROPHYLAXIS
  2. VICODIN ES [Suspect]
     Indication: BACK PAIN
  3. CINRYZE [Suspect]
     Indication: HEREDITARY ANGIOEDEMA
     Route: 042

REACTIONS (2)
  - MALAISE [None]
  - DYSPNOEA [None]
